FAERS Safety Report 8037752-8 (Version None)
Quarter: 2012Q1

REPORT INFORMATION
  Report Type: 
  Country: None (occurrence: None)
  Receive Date: 20120111
  Receipt Date: 20120105
  Transmission Date: 20120608
  Serious: Yes (Hospitalization)
  Sender: FDA-Public Use
  Company Number: CA-ABBOTT-11P-028-0877251-00

PATIENT
  Age: 39 Year
  Sex: Female
  Weight: 55.842 kg

DRUGS (2)
  1. VENTOLIN [Concomitant]
     Indication: PRODUCT USED FOR UNKNOWN INDICATION
     Route: 055
  2. HUMIRA [Suspect]
     Indication: CROHN'S DISEASE
     Route: 058
     Dates: start: 20100301, end: 20101215

REACTIONS (4)
  - LUNG DISORDER [None]
  - DYSPNOEA [None]
  - COUGH [None]
  - ORGANISING PNEUMONIA [None]
